FAERS Safety Report 9242907 (Version 6)
Quarter: 2013Q3

REPORT INFORMATION
  Report Type: Spontaneous
  Country: US (occurrence: US)
  Receive Date: 20130419
  Receipt Date: 20130911
  Transmission Date: 20140515
  Serious: Yes (Hospitalization, Other)
  Sender: FDA-Public Use
  Company Number: US-UCBSA-083475

PATIENT
  Age: 70 Year
  Sex: Female
  Weight: 58 kg

DRUGS (7)
  1. CIMZIA [Suspect]
     Indication: CROHN^S DISEASE
     Dates: start: 20110225
  2. CIMZIA [Suspect]
     Indication: CROHN^S DISEASE
     Dates: start: 20130521, end: 2013
  3. CIMZIA [Suspect]
     Indication: CROHN^S DISEASE
     Dates: start: 2013
  4. AZATHIOPRINE [Concomitant]
     Indication: CROHN^S DISEASE
     Dosage: 50MG DOSE-2 DAILY
     Dates: start: 201303
  5. PLAVIX [Concomitant]
  6. ASPIRIN [Concomitant]
  7. MERCAPTOPURINE [Concomitant]
     Indication: CROHN^S DISEASE
     Dosage: 50MG - 1.5 PILLS DAILY
     Dates: start: 201201

REACTIONS (10)
  - Renal cancer [Not Recovered/Not Resolved]
  - Vomiting [Not Recovered/Not Resolved]
  - Cholecystectomy [Not Recovered/Not Resolved]
  - Pancreatitis acute [Unknown]
  - Chest pain [Not Recovered/Not Resolved]
  - Weight decreased [Recovered/Resolved]
  - Malaise [Unknown]
  - Asthenia [Unknown]
  - Listless [Unknown]
  - Medication error [Unknown]
